FAERS Safety Report 12041803 (Version 2)
Quarter: 2016Q2

REPORT INFORMATION
  Report Type: Spontaneous
  Country: US (occurrence: US)
  Receive Date: 20160208
  Receipt Date: 20160518
  Transmission Date: 20160815
  Serious: No
  Sender: FDA-Public Use
  Company Number: US-PFIZER INC-2016064460

PATIENT
  Age: 62 Year
  Sex: Female
  Weight: 76.19 kg

DRUGS (1)
  1. SUTENT [Suspect]
     Active Substance: SUNITINIB MALATE
     Indication: NEOPLASM MALIGNANT
     Dosage: 50 MG,
     Route: 048
     Dates: start: 20160126

REACTIONS (2)
  - Fatigue [Unknown]
  - Asthenia [Unknown]
